FAERS Safety Report 7056256-2 (Version None)
Quarter: 2010Q4

REPORT INFORMATION
  Report Type: 
  Country: None (occurrence: None)
  Receive Date: 20101021
  Receipt Date: 20101008
  Transmission Date: 20110411
  Serious: No
  Sender: FDA-Public Use
  Company Number: US-ELI_LILLY_AND_COMPANY-US201009000399

PATIENT
  Sex: Male

DRUGS (1)
  1. CYMBALTA [Suspect]
     Dosage: 60 MG, DAILY (1/D)

REACTIONS (1)
  - HEPATIC ENZYME INCREASED [None]
